FAERS Safety Report 20062014 (Version 1)
Quarter: 2021Q4

REPORT INFORMATION
  Report Type: Spontaneous
  Country: BR (occurrence: BR)
  Receive Date: 20211112
  Receipt Date: 20211112
  Transmission Date: 20220303
  Serious: Yes (Other)
  Sender: FDA-Public Use
  Company Number: None

PATIENT
  Age: 38 Year
  Sex: Female
  Weight: 72 kg

DRUGS (2)
  1. CUBICIN [Suspect]
     Active Substance: DAPTOMYCIN
     Indication: Device mechanical issue
     Dosage: 500 MILLIGRAM (POSOLOGY REPORRED AS 5000MG, 500MG)
     Route: 042
     Dates: start: 20181205, end: 20181205
  2. CUBICIN [Suspect]
     Active Substance: DAPTOMYCIN
     Indication: Pseudomonas infection

REACTIONS (4)
  - Salivary hypersecretion [Recovered/Resolved]
  - Dyspnoea [Recovered/Resolved]
  - Rash [Recovered/Resolved]
  - Cough [Recovered/Resolved]

NARRATIVE: CASE EVENT DATE: 20181205
